FAERS Safety Report 23091649 (Version 2)
Quarter: 2023Q4

REPORT INFORMATION
  Report Type: Spontaneous
  Country: JP (occurrence: None)
  Receive Date: 20231020
  Receipt Date: 20231115
  Transmission Date: 20240110
  Serious: Yes (Other)
  Sender: FDA-Public Use
  Company Number: 2023A236896

PATIENT

DRUGS (3)
  1. IMFINZI [Suspect]
     Active Substance: DURVALUMAB
     Indication: Non-small cell lung cancer
     Route: 041
     Dates: start: 20211130, end: 20211130
  2. PREDNISOLONE [Concomitant]
     Active Substance: PREDNISOLONE
     Dosage: 5.0MG UNKNOWN
     Dates: start: 20211223
  3. URSO [Concomitant]
     Active Substance: URSODIOL
     Dates: start: 20220203

REACTIONS (4)
  - Immune-mediated hepatic disorder [Recovering/Resolving]
  - Radiation pneumonitis [Unknown]
  - Rheumatoid arthritis [Unknown]
  - Scleroderma [Unknown]

NARRATIVE: CASE EVENT DATE: 20211214
